FAERS Safety Report 24463072 (Version 1)
Quarter: 2024Q4

REPORT INFORMATION
  Report Type: Report from Study
  Country: CA (occurrence: CA)
  Receive Date: 20241018
  Receipt Date: 20241018
  Transmission Date: 20250114
  Serious: No
  Sender: ROCHE
  Company Number: CA-002147023-PHHY2013CA138213

PATIENT
  Age: 39 Year
  Sex: Female
  Weight: 108.6 kg

DRUGS (7)
  1. XOLAIR [Suspect]
     Active Substance: OMALIZUMAB
     Indication: Asthma
     Route: 058
     Dates: start: 20091222
  2. XOLAIR [Suspect]
     Active Substance: OMALIZUMAB
     Dosage: UNK
     Route: 058
     Dates: start: 20131127, end: 20180411
  3. XOLAIR [Suspect]
     Active Substance: OMALIZUMAB
     Route: 058
     Dates: start: 20200416
  4. ADVAIR HFA [Concomitant]
     Active Substance: FLUTICASONE PROPIONATE\SALMETEROL XINAFOATE
     Indication: Product used for unknown indication
     Route: 065
  5. SINGULAIR [Concomitant]
     Active Substance: MONTELUKAST SODIUM
     Indication: Product used for unknown indication
     Route: 065
  6. VENTOLIN [Concomitant]
     Active Substance: ALBUTEROL SULFATE
     Indication: Product used for unknown indication
     Route: 065
  7. NUCALA [Concomitant]
     Active Substance: MEPOLIZUMAB
     Indication: Product used for unknown indication
     Route: 065

REACTIONS (12)
  - Mean cell haemoglobin decreased [Unknown]
  - Red blood cell count increased [Unknown]
  - Platelet count increased [Unknown]
  - Blood creatinine increased [Unknown]
  - Hypertension [Unknown]
  - Asthma [Not Recovered/Not Resolved]
  - Eosinophil count increased [Unknown]
  - Hypersensitivity [Unknown]
  - Obstructive airways disorder [Unknown]
  - Weight increased [Unknown]
  - Nasopharyngitis [Unknown]
  - Weight decreased [Unknown]

NARRATIVE: CASE EVENT DATE: 20131127
